FAERS Safety Report 8198526-0 (Version None)
Quarter: 2012Q1

REPORT INFORMATION
  Report Type: 
  Country: None (occurrence: None)
  Receive Date: 20120309
  Receipt Date: 20111206
  Transmission Date: 20120608
  Serious: No
  Sender: FDA-Public Use
  Company Number: US-AMGEN-USASP2011064870

PATIENT
  Age: 66 Year
  Sex: Male

DRUGS (6)
  1. MAGNESIUM [Concomitant]
  2. PROLIA [Suspect]
     Indication: OSTEOPOROSIS
     Dates: start: 20110803
  3. INFLUENZA [Suspect]
  4. CALCIUM [Concomitant]
  5. VITAMIN D [Concomitant]
  6. MULTI-VITAMIN [Concomitant]

REACTIONS (6)
  - EAR INFECTION [None]
  - INFLUENZA LIKE ILLNESS [None]
  - PLATELET COUNT DECREASED [None]
  - SINUSITIS [None]
  - DIVERTICULITIS [None]
  - HEPATIC ENZYME INCREASED [None]
